FAERS Safety Report 9283351 (Version 1)
Quarter: 2013Q2

REPORT INFORMATION
  Report Type: Other
  Country: US (occurrence: US)
  Receive Date: 20130510
  Receipt Date: 20130510
  Transmission Date: 20140414
  Serious: Yes (Other)
  Sender: FDA-Public Use
  Company Number: US-NAPPMUNDI-USA-2013-0101876

PATIENT
  Age: 40 Year
  Sex: Female

DRUGS (5)
  1. OXYCODONE HYDROCHLORIDE (SIMILAR TO NDA 20-553) [Suspect]
     Indication: PAIN
     Dosage: 2 TO 3 TIMES PER WEEK
  2. PROTON PUMP INHIBITORS [Suspect]
     Indication: PRODUCT USED FOR UNKNOWN INDICATION
     Dosage: UNKNOWN
  3. MIDAZOLAM [Suspect]
     Indication: COLONOSCOPY
     Dosage: 7 MG, UNK
  4. MEPERIDINE /00016301/ [Suspect]
     Indication: COLONOSCOPY
     Dosage: 100 MG, UNK
  5. FENTANYL [Suspect]
     Indication: COLONOSCOPY
     Dosage: 125 MILLIMICROGRAM

REACTIONS (5)
  - Large intestinal obstruction [Unknown]
  - Haematochezia [Unknown]
  - Abdominal pain [Unknown]
  - Haemorrhoids [None]
  - Large intestine perforation [None]
